FAERS Safety Report 9402354 (Version 1)
Quarter: 2013Q3

REPORT INFORMATION
  Report Type: Spontaneous
  Country: CA (occurrence: CA)
  Receive Date: 20130716
  Receipt Date: 20130716
  Transmission Date: 20140515
  Serious: Yes (Hospitalization, Other)
  Sender: FDA-Public Use
  Company Number: CA-PFIZER INC-2013202325

PATIENT
  Age: 57 Year
  Sex: Female

DRUGS (1)
  1. CELEBREX [Suspect]
     Dosage: 200 MG, UNK

REACTIONS (2)
  - Myocardial infarction [Unknown]
  - Aortic stenosis [Unknown]
